FAERS Safety Report 9792024 (Version 1)
Quarter: 2014Q1

REPORT INFORMATION
  Report Type: Spontaneous
  Country: GB (occurrence: GB)
  Receive Date: 20140102
  Receipt Date: 20140102
  Transmission Date: 20141002
  Serious: Yes (Hospitalization, Other)
  Sender: FDA-Public Use
  Company Number: GB-SA-2013SA135048

PATIENT
  Age: 80 Year
  Sex: Male

DRUGS (4)
  1. JEVTANA [Suspect]
     Indication: HORMONE-REFRACTORY PROSTATE CANCER
     Route: 042
  2. TAMSULOSIN [Concomitant]
  3. ONDANSETRON [Concomitant]
  4. METFORMIN [Concomitant]

REACTIONS (4)
  - Hypocalcaemia [Unknown]
  - Renal failure acute [Not Recovered/Not Resolved]
  - Diarrhoea [Unknown]
  - Dehydration [Unknown]
